FAERS Safety Report 9943095 (Version 1)
Quarter: 2014Q1

REPORT INFORMATION
  Report Type: Spontaneous
  Country: IT (occurrence: IT)
  Receive Date: 20140303
  Receipt Date: 20140303
  Transmission Date: 20141002
  Serious: Yes (Other)
  Sender: FDA-Public Use
  Company Number: PHHY2014IT022982

PATIENT
  Age: 41 Year
  Sex: Female

DRUGS (3)
  1. OXALIPLATIN [Suspect]
     Indication: PANCREATIC CARCINOMA
     Dosage: 100 MG, ONCE/SINGLE
     Route: 042
  2. IRINOTECAN [Concomitant]
     Dosage: 200 MG, UNK
     Route: 042
  3. 5 FLUORO URACIL [Concomitant]
     Dosage: 500 MG, UNK
     Route: 042

REACTIONS (3)
  - Dyslalia [Recovered/Resolved]
  - Laryngospasm [Recovered/Resolved]
  - Hyperhidrosis [Recovered/Resolved]
